FAERS Safety Report 7364052-1 (Version None)
Quarter: 2011Q1

REPORT INFORMATION
  Report Type: 
  Country: None (occurrence: None)
  Receive Date: 20110321
  Receipt Date: 20110308
  Transmission Date: 20110831
  Serious: Yes (Hospitalization)
  Sender: FDA-Public Use
  Company Number: PHHY2011US19380

PATIENT

DRUGS (2)
  1. TEKTURNA [Suspect]
     Indication: HYPERTENSION
  2. DIOVAN [Concomitant]

REACTIONS (1)
  - CONVULSION [None]
